FAERS Safety Report 9278247 (Version 9)
Quarter: 2014Q3

REPORT INFORMATION
  Report Type: Report from Study
  Country: FI (occurrence: FI)
  Receive Date: 20130508
  Receipt Date: 20140923
  Transmission Date: 20150326
  Serious: Yes (Hospitalization)
  Sender: FDA-Public Use
  Company Number: FI-ROCHE-1220364

PATIENT
  Age: 85 Year
  Sex: Female
  Weight: 58 kg

DRUGS (7)
  1. EMCONCOR [Concomitant]
     Active Substance: BISOPROLOL FUMARATE
     Dosage: TOTAL DAILY DOSE: 5/12.5MG
     Route: 065
     Dates: start: 2000
  2. LIPCUT [Concomitant]
     Active Substance: SIMVASTATIN
     Route: 065
     Dates: start: 2000
  3. AZOPT [Concomitant]
     Active Substance: BRINZOLAMIDE
     Route: 065
     Dates: start: 200601
  4. XALCOM [Concomitant]
     Active Substance: LATANOPROST\TIMOLOL
     Dosage: TOTAL DAILY DOSE: 50/5MCG
     Route: 065
     Dates: start: 200601
  5. TRASTUZUMAB EMTANSINE [Suspect]
     Active Substance: ADO-TRASTUZUMAB EMTANSINE
     Indication: HER-2 POSITIVE BREAST CANCER
     Dosage: LAST DOSE PRIOR TO SAE WAS ON 02/APR/2013
     Route: 042
     Dates: start: 20130308
  6. ACETYLSALICYLIC ACID [Concomitant]
     Active Substance: ASPIRIN
     Route: 065
     Dates: start: 2000
  7. ZANIDIP [Concomitant]
     Active Substance: LERCANIDIPINE HYDROCHLORIDE
     Route: 065
     Dates: start: 2000

REACTIONS (1)
  - Pneumonia [Recovered/Resolved]

NARRATIVE: CASE EVENT DATE: 20130407
